FAERS Safety Report 13092516 (Version 1)
Quarter: 2017Q1

REPORT INFORMATION
  Report Type: Spontaneous
  Country: US (occurrence: US)
  Receive Date: 20170106
  Receipt Date: 20170106
  Transmission Date: 20170428
  Serious: No
  Sender: FDA-Public Use
  Company Number: US-JNJFOC-20161117574

PATIENT
  Sex: Female

DRUGS (2)
  1. TYLENOL EXTRA STRENGTH [Suspect]
     Active Substance: ACETAMINOPHEN
     Indication: PAIN
     Dosage: USED FOR 3 DAYS
     Route: 048
  2. TYLENOL EXTRA STRENGTH [Suspect]
     Active Substance: ACETAMINOPHEN
     Indication: OROPHARYNGEAL PAIN
     Dosage: USED FOR 3 DAYS
     Route: 048

REACTIONS (6)
  - Malaise [Recovering/Resolving]
  - Pollakiuria [Recovering/Resolving]
  - Presyncope [Recovering/Resolving]
  - Dehydration [Recovering/Resolving]
  - Off label use [Unknown]
  - Prescribed underdose [Unknown]
